FAERS Safety Report 5078748-8 (Version None)
Quarter: 2006Q3

REPORT INFORMATION
  Report Type: 
  Country: None (occurrence: None)
  Receive Date: 20060814
  Receipt Date: 20060803
  Transmission Date: 20061208
  Serious: Yes (Hospitalization)
  Sender: FDA-Public Use
  Company Number: FR-JNJFOC-20060801017

PATIENT
  Age: 58 Year
  Sex: Female

DRUGS (9)
  1. REMICADE [Suspect]
     Indication: DRUG USE FOR UNKNOWN INDICATION
     Dosage: 4 INFUSIONS
     Route: 042
  2. PROGRAF [Suspect]
     Indication: DRUG USE FOR UNKNOWN INDICATION
     Route: 048
  3. VFEND [Suspect]
     Indication: DRUG USE FOR UNKNOWN INDICATION
     Route: 048
  4. ROVALCYTE [Suspect]
     Indication: DRUG USE FOR UNKNOWN INDICATION
     Route: 048
  5. ORACILLINE [Suspect]
     Indication: DRUG USE FOR UNKNOWN INDICATION
     Route: 048
  6. CELLCEPT [Suspect]
     Indication: DRUG USE FOR UNKNOWN INDICATION
     Route: 048
  7. NEXIUM [Concomitant]
     Route: 065
  8. LEXOMIL [Concomitant]
     Route: 065
  9. CIFLOX [Concomitant]
     Route: 065

REACTIONS (6)
  - CYTOMEGALOVIRUS VIRAEMIA [None]
  - GAIT DISTURBANCE [None]
  - GRAFT VERSUS HOST DISEASE [None]
  - NEUROPATHY [None]
  - PARALYSIS FLACCID [None]
  - QUADRIPARESIS [None]
